FAERS Safety Report 18090829 (Version 1)
Quarter: 2020Q3

REPORT INFORMATION
  Report Type: Spontaneous
  Country: US (occurrence: US)
  Receive Date: 20200730
  Receipt Date: 20200730
  Transmission Date: 20201103
  Serious: No
  Sender: FDA-Public Use
  Company Number: US-GW PHARMA-202007USGW02652

PATIENT

DRUGS (1)
  1. EPIDIOLEX [Suspect]
     Active Substance: CANNABIDIOL
     Indication: LENNOX-GASTAUT SYNDROME
     Dosage: 80 MILLIGRAM, BID (DOSE DECREASED TO 30 MG, BID)
     Route: 048
     Dates: start: 20200604

REACTIONS (2)
  - Increased appetite [Unknown]
  - Aggression [Unknown]

NARRATIVE: CASE EVENT DATE: 2020
